FAERS Safety Report 7741211-7 (Version None)
Quarter: 2011Q3

REPORT INFORMATION
  Report Type: 
  Country: None (occurrence: None)
  Receive Date: 20110909
  Receipt Date: 20110902
  Transmission Date: 20111222
  Serious: Yes (Other)
  Sender: FDA-Public Use
  Company Number: CH-BAYER-2011-080465

PATIENT
  Age: 35 Year
  Sex: Female

DRUGS (5)
  1. AVELOX [Suspect]
     Dosage: 400 MG, QD
     Route: 064
     Dates: start: 20110101
  2. PYRAZINAMIDE [Suspect]
     Indication: TUBERCULOSIS
     Dosage: 1500 MG, QD
     Route: 064
     Dates: start: 20110101
  3. RIFAMPICIN [Suspect]
     Indication: TUBERCULOSIS
     Dosage: 600 MG, QD
     Route: 064
     Dates: start: 20110101
  4. FLUOXETINE HCL [Suspect]
     Dosage: UNK
     Route: 064
     Dates: start: 20110101
  5. ETHAMBUTOL HYDROCHLORIDE [Suspect]
     Indication: TUBERCULOSIS
     Dosage: 200 MG, QD
     Route: 064
     Dates: start: 20110101

REACTIONS (1)
  - MATERNAL EXPOSURE DURING PREGNANCY [None]
